FAERS Safety Report 4780533-9 (Version None)
Quarter: 2005Q3

REPORT INFORMATION
  Report Type: 
  Country: None (occurrence: None)
  Receive Date: 20050926
  Receipt Date: 20050913
  Transmission Date: 20060218
  Serious: Yes (Other)
  Sender: FDA-Public Use
  Company Number: 2005130928

PATIENT
  Age: 56 Year
  Sex: Female
  Weight: 79.3795 kg

DRUGS (4)
  1. ZYRTEC [Suspect]
     Indication: MULTIPLE ALLERGIES
  2. ANTIHYPERTENSIVES (ANTIHYPERTENSIVES) [Suspect]
     Indication: BLOOD PRESSURE INCREASED
  3. SERUMLIPIDREDUCING AGENTS (SERUMLIPIDREDUCING AGENTS) [Suspect]
     Indication: MULTIPLE ALLERGIES
  4. CLARITIN-D [Concomitant]
     Indication: MULTIPLE ALLERGIES

REACTIONS (6)
  - ANGINA PECTORIS [None]
  - BLOOD CHOLESTEROL INCREASED [None]
  - CATHETER PLACEMENT [None]
  - CATHETERISATION CARDIAC [None]
  - EPISTAXIS [None]
  - RENAL DISORDER [None]
